FAERS Safety Report 25181678 (Version 1)
Quarter: 2025Q2

REPORT INFORMATION
  Report Type: Report from Study
  Country: DE (occurrence: DE)
  Receive Date: 20250410
  Receipt Date: 20250410
  Transmission Date: 20250716
  Serious: Yes (Hospitalization)
  Sender: ALIMERA
  Company Number: DE-ALIMERA SCIENCES LIMITED-DE-IL-2016-002842

PATIENT
  Sex: Male

DRUGS (19)
  1. ILUVIEN [Suspect]
     Active Substance: FLUOCINOLONE ACETONIDE
     Indication: Diabetic retinal oedema
     Dosage: 0.25 MICROGRAM, QD - LEFT EYE
     Route: 031
     Dates: start: 20151201
  2. PHENPROCOUMON [Concomitant]
     Active Substance: PHENPROCOUMON
     Indication: Cardiac failure
  3. BISOPROLOL [Concomitant]
     Active Substance: BISOPROLOL
     Indication: Hypertension
  4. REVATIO [Concomitant]
     Active Substance: SILDENAFIL CITRATE
     Indication: Pulmonary hypertension
  5. EPLERENONE [Concomitant]
     Active Substance: EPLERENONE
     Indication: Cardiac failure
  6. CINACALCET HYDROCHLORIDE [Concomitant]
     Active Substance: CINACALCET HYDROCHLORIDE
     Indication: Hyperparathyroidism secondary
  7. ALFACALCIDOL [Concomitant]
     Active Substance: ALFACALCIDOL
     Indication: Bone disorder
  8. CHOLECALCIFEROL [Concomitant]
     Active Substance: CHOLECALCIFEROL
     Indication: Bone disorder
  9. LANTUS [Concomitant]
     Active Substance: INSULIN GLARGINE
     Indication: Diabetes mellitus
  10. APIDRA [Concomitant]
     Active Substance: INSULIN GLULISINE
     Indication: Diabetes mellitus
  11. dreisavit [Concomitant]
     Indication: Supplementation therapy
  12. THYROXINE [Concomitant]
     Active Substance: LEVOTHYROXINE
     Indication: Thyroid disorder
  13. RENVELA [Concomitant]
     Active Substance: SEVELAMER CARBONATE
     Indication: Phosphorus metabolism disorder
  14. fesrenol [Concomitant]
     Indication: Phosphorus metabolism disorder
  15. cps powder [Concomitant]
     Indication: Hyperkalaemia
  16. temazep CT [Concomitant]
     Indication: Insomnia
  17. TRUSOPT [Concomitant]
     Active Substance: DORZOLAMIDE HYDROCHLORIDE
     Indication: Intraocular pressure increased
     Dates: start: 20160315
  18. PREDNISOLONE ACETATE [Concomitant]
     Active Substance: PREDNISOLONE ACETATE
     Indication: Glaucoma surgery
     Dates: start: 20161202
  19. GENTAMICIN [Concomitant]
     Active Substance: GENTAMICIN
     Indication: Infection prophylaxis
     Dates: start: 20161202

REACTIONS (2)
  - Medical device implantation [Not Recovered/Not Resolved]
  - Intraocular pressure increased [Unknown]

NARRATIVE: CASE EVENT DATE: 20160712
